FAERS Safety Report 8614343-9 (Version None)
Quarter: 2012Q3

REPORT INFORMATION
  Report Type: 
  Country: None (occurrence: None)
  Receive Date: 20120823
  Receipt Date: 20120815
  Transmission Date: 20120928
  Serious: Yes (Hospitalization, Other)
  Sender: FDA-Public Use
  Company Number: US-JNJFOC-20120711422

PATIENT
  Age: 75 Year
  Sex: Male
  Weight: 84 kg

DRUGS (7)
  1. AMIODARONE HCL [Concomitant]
  2. LOPRESSOR [Concomitant]
  3. XARELTO [Suspect]
     Indication: ATRIAL FIBRILLATION
     Route: 048
     Dates: start: 20120502
  4. ASPIRIN [Concomitant]
  5. XARELTO [Suspect]
     Indication: CEREBROVASCULAR ACCIDENT PROPHYLAXIS
     Route: 048
     Dates: start: 20120502
  6. LOVENOX [Concomitant]
     Dates: end: 20120501
  7. COZAAR [Concomitant]

REACTIONS (1)
  - HAEMORRHAGE INTRACRANIAL [None]
